FAERS Safety Report 7295559-3 (Version None)
Quarter: 2011Q1

REPORT INFORMATION
  Report Type: 
  Country: None (occurrence: None)
  Receive Date: 20110216
  Receipt Date: 20110211
  Transmission Date: 20110831
  Serious: Yes (Life-Threatening)
  Sender: FDA-Public Use
  Company Number: DE-TYCO HEALTHCARE/MALLINCKRODT-T201100294

PATIENT
  Sex: Male
  Weight: 80 kg

DRUGS (4)
  1. NEURALGIN                          /00005201/ [Concomitant]
  2. METFORMIN HCL [Concomitant]
  3. TECHNESCAN [Suspect]
     Indication: BONE SCAN
     Dosage: 0.7 ML, SINGLE
     Route: 042
     Dates: start: 20110209, end: 20110209
  4. TECHNETIUM TC-99M [Suspect]
     Indication: BONE SCAN
     Dosage: 700 MBQ, SINGLE
     Route: 042
     Dates: start: 20110209, end: 20110209

REACTIONS (1)
  - RENAL FAILURE ACUTE [None]
